FAERS Safety Report 10224469 (Version 1)
Quarter: 2014Q2

REPORT INFORMATION
  Report Type: Spontaneous
  Country: NL (occurrence: NL)
  Receive Date: 20140609
  Receipt Date: 20140609
  Transmission Date: 20141212
  Serious: Yes (Death)
  Sender: FDA-Public Use
  Company Number: NL-IPSEN BIOPHARMACEUTICALS, INC.-2014-2827

PATIENT
  Age: 70 Year
  Sex: Female

DRUGS (4)
  1. SOMATULINE AUTOSOLUTION 120MG [Suspect]
     Indication: HEPATIC CANCER
     Dosage: 120 MG
     Route: 058
     Dates: start: 20121221, end: 20140526
  2. SOMATULINE AUTOSOLUTION 120MG [Suspect]
     Indication: METASTASIS
  3. SOMATULINE AUTOSOLUTION 120MG [Suspect]
     Indication: OFF LABEL USE
  4. MORPHINE [Concomitant]
     Indication: PRODUCT USED FOR UNKNOWN INDICATION
     Dosage: NOT REPORTED
     Route: 065

REACTIONS (2)
  - Disease progression [Fatal]
  - Inappropriate schedule of drug administration [Unknown]
